FAERS Safety Report 7985401-7 (Version None)
Quarter: 2011Q4

REPORT INFORMATION
  Report Type: 
  Country: None (occurrence: None)
  Receive Date: 20111216
  Receipt Date: 20111213
  Transmission Date: 20120403
  Serious: Yes (Life-Threatening, Hospitalization)
  Sender: FDA-Public Use
  Company Number: FR-JNJFOC-20111205809

PATIENT
  Sex: Male

DRUGS (6)
  1. PAROXETINE HCL [Concomitant]
     Route: 065
  2. RISPERDAL [Suspect]
     Indication: PRODUCT USED FOR UNKNOWN INDICATION
     Route: 048
  3. NOZINAN [Suspect]
     Indication: PRODUCT USED FOR UNKNOWN INDICATION
     Route: 065
     Dates: end: 20110922
  4. ZOLPIDEM [Concomitant]
     Route: 065
  5. CLONAZEPAM [Concomitant]
     Route: 065
  6. TROLOVOL [Concomitant]
     Route: 065

REACTIONS (2)
  - SEPTIC EMBOLUS [None]
  - PULMONARY EMBOLISM [None]
